FAERS Safety Report 6288389-2 (Version None)
Quarter: 2009Q3

REPORT INFORMATION
  Report Type: 
  Country: None (occurrence: None)
  Receive Date: 20090729
  Receipt Date: 20090727
  Transmission Date: 20100115
  Serious: Yes (Congenital Anomaly)
  Sender: FDA-Public Use
  Company Number: A0679422A

PATIENT
  Sex: Male

DRUGS (1)
  1. PAXIL [Suspect]
     Indication: ANXIETY
     Dates: start: 19970101, end: 20050101

REACTIONS (8)
  - ASTHMA [None]
  - ATRIAL SEPTAL DEFECT [None]
  - DRUG EXPOSURE DURING PREGNANCY [None]
  - HEART DISEASE CONGENITAL [None]
  - MATERNAL DRUGS AFFECTING FOETUS [None]
  - PATENT DUCTUS ARTERIOSUS [None]
  - PERSISTENT FOETAL CIRCULATION [None]
  - VENTRICULAR SEPTAL DEFECT [None]
